FAERS Safety Report 9036048 (Version 1)
Quarter: 2013Q1

REPORT INFORMATION
  Report Type: Report from Study
  Country: US (occurrence: US)
  Receive Date: 20130129
  Receipt Date: 20130129
  Transmission Date: 20140127
  Serious: No
  Sender: FDA-Public Use
  Company Number: US-ABBOTT-12P-163-0918365-00

PATIENT
  Age: 55 Year
  Sex: Male

DRUGS (7)
  1. HUMIRA 40 MG/0.8 ML PEN [Suspect]
     Indication: PSORIASIS
     Dates: start: 20111214
  2. HALDOL [Concomitant]
     Indication: DEPRESSION
  3. COGENTIN [Concomitant]
     Indication: PREMEDICATION
  4. ATIVAN [Concomitant]
     Indication: PRODUCT USED FOR UNKNOWN INDICATION
  5. DEPAKOTE [Concomitant]
     Indication: BIPOLAR DISORDER
     Dosage: 1 IN 1 D, AT BEDTIME
  6. BENADRYL [Concomitant]
     Indication: HYPERSENSITIVITY
  7. SIMVASTATIN [Concomitant]
     Indication: BLOOD DISORDER

REACTIONS (2)
  - Dry skin [Recovering/Resolving]
  - Skin depigmentation [Recovering/Resolving]
